FAERS Safety Report 21458571 (Version 1)
Quarter: 2022Q4

REPORT INFORMATION
  Report Type: Other
  Country: None (occurrence: US)
  Receive Date: 20221014
  Receipt Date: 20221014
  Transmission Date: 20230112
  Serious: Yes (Other)
  Sender: FDA-Public Use
  Company Number: US-Alembic Labs LLC-2133860

PATIENT
  Age: 14 Year
  Sex: Female
  Weight: 55 kg

DRUGS (1)
  1. BENZONATATE [Suspect]
     Active Substance: BENZONATATE
     Indication: Cough
     Route: 048

REACTIONS (6)
  - Cardiac disorder [Unknown]
  - Overdose [Unknown]
  - Torsade de pointes [Unknown]
  - Pulse absent [Unknown]
  - Tachycardia [Unknown]
  - Cyanosis [Unknown]
